FAERS Safety Report 16288699 (Version 2)
Quarter: 2019Q2

REPORT INFORMATION
  Report Type: Spontaneous
  Country: US (occurrence: US)
  Receive Date: 20190509
  Receipt Date: 20190603
  Transmission Date: 20190711
  Serious: Yes (Other)
  Sender: FDA-Public Use
  Company Number: US-ROCHE-2306517

PATIENT
  Age: 98 Year
  Sex: Female

DRUGS (13)
  1. IDELALISIB [Suspect]
     Active Substance: IDELALISIB
     Indication: B-CELL LYMPHOMA
     Route: 048
     Dates: start: 20190311
  2. RITUXAN [Suspect]
     Active Substance: RITUXIMAB
     Route: 042
     Dates: start: 20190409, end: 20190409
  3. VITAMIN C [Suspect]
     Active Substance: ASCORBIC ACID
     Indication: VITAMIN C INCREASED
     Route: 048
     Dates: start: 201804
  4. CARVEDILOL. [Concomitant]
     Active Substance: CARVEDILOL
     Route: 065
  5. RITUXAN [Suspect]
     Active Substance: RITUXIMAB
     Route: 042
     Dates: start: 20190416, end: 20190416
  6. LEVOTHYROXINE. [Suspect]
     Active Substance: LEVOTHYROXINE
     Route: 048
  7. LEVOTHYROXINE. [Suspect]
     Active Substance: LEVOTHYROXINE
     Indication: HYPOTHYROIDISM
     Route: 048
  8. LEVOTHYROXINE. [Suspect]
     Active Substance: LEVOTHYROXINE
     Route: 048
  9. LEVOTHYROXINE. [Suspect]
     Active Substance: LEVOTHYROXINE
     Route: 048
  10. RITUXAN [Suspect]
     Active Substance: RITUXIMAB
     Route: 042
     Dates: start: 20190423, end: 20190423
  11. RITUXAN [Suspect]
     Active Substance: RITUXIMAB
     Indication: B-CELL LYMPHOMA
     Route: 042
     Dates: start: 20190310, end: 20190310
  12. LEVOTHYROXINE. [Suspect]
     Active Substance: LEVOTHYROXINE
     Route: 048
  13. SOTALOL. [Concomitant]
     Active Substance: SOTALOL

REACTIONS (26)
  - Salivary hypersecretion [Not Recovered/Not Resolved]
  - Joint swelling [Recovering/Resolving]
  - Lip haemorrhage [Not Recovered/Not Resolved]
  - Decreased appetite [Unknown]
  - Fatigue [Recovered/Resolved]
  - Fall [Unknown]
  - Lip haemorrhage [Unknown]
  - Tongue discomfort [Not Recovered/Not Resolved]
  - Hallucination [Recovered/Resolved]
  - Oral contusion [Unknown]
  - Immunodeficiency [Not Recovered/Not Resolved]
  - Glossodynia [Not Recovered/Not Resolved]
  - Depression [Recovered/Resolved]
  - Oral contusion [Unknown]
  - Pain in extremity [Not Recovered/Not Resolved]
  - Cough [Not Recovered/Not Resolved]
  - Infusion site bruising [Not Recovered/Not Resolved]
  - Hypothyroidism [Unknown]
  - Insomnia [Unknown]
  - Arthralgia [Not Recovered/Not Resolved]
  - Erythema [Not Recovered/Not Resolved]
  - Hypersomnia [Not Recovered/Not Resolved]
  - Skin abrasion [Unknown]
  - Psychomotor hyperactivity [Unknown]
  - Peripheral coldness [Not Recovered/Not Resolved]
  - Lip pain [Not Recovered/Not Resolved]

NARRATIVE: CASE EVENT DATE: 20190310
